FAERS Safety Report 5036571-4 (Version None)
Quarter: 2006Q2

REPORT INFORMATION
  Report Type: 
  Country: None (occurrence: None)
  Receive Date: 20060623
  Receipt Date: 20060612
  Transmission Date: 20061013
  Serious: Yes (Life-Threatening, Hospitalization)
  Sender: FDA-Public Use
  Company Number: 2006074690

PATIENT
  Age: 69 Year
  Sex: Female

DRUGS (19)
  1. SUTENT [Suspect]
     Indication: RENAL CELL CARCINOMA STAGE UNSPECIFIED
     Dosage: 50 MG (50 MG, INTERVAL: EVERY DAY),ORAL
     Route: 048
     Dates: start: 20060508, end: 20060603
  2. DILTIAZEM [Concomitant]
  3. ENALAPRIL MALEATE [Concomitant]
  4. METFORMIN [Concomitant]
  5. SIMVASTATIN [Concomitant]
  6. MAXOLON [Concomitant]
  7. DOLGESIC    (PARACETAMOL) [Concomitant]
  8. METHYLDOPA [Concomitant]
  9. AMIKACIN [Concomitant]
  10. CLOXACILLIN (CLOXACILLIN) [Concomitant]
  11. LEVOFLOXACIN [Concomitant]
  12. ENZYPLEX (ENZYMES NOS, VITAMINS NOS) [Concomitant]
  13. PEPCIDIN (FAMOTIDINE) [Concomitant]
  14. MORPHINE [Concomitant]
  15. VITA K1  (PHYTOMENADIONE) [Concomitant]
  16. TAZOCIN   (PIPERACILLIN SODIUM, TAZOBACTAM SODIUM) [Concomitant]
  17. TRANSAMIN (TRANEXAMIC ACID) [Concomitant]
  18. LEVOTHYROXINE SODIUM [Concomitant]
  19. ALDACTONE [Concomitant]

REACTIONS (7)
  - DISSEMINATED INTRAVASCULAR COAGULATION [None]
  - HYPERTENSION [None]
  - INFECTION [None]
  - NEUTROPENIA [None]
  - OEDEMA PERIPHERAL [None]
  - SKIN DISCOLOURATION [None]
  - THROMBOCYTOPENIA [None]
